FAERS Safety Report 9320822 (Version 1)
Quarter: 2013Q2

REPORT INFORMATION
  Report Type: Spontaneous
  Country: US (occurrence: None)
  Receive Date: 20130529
  Receipt Date: 20130529
  Transmission Date: 20140414
  Serious: Yes (Hospitalization)
  Sender: FDA-Public Use
  Company Number: None

PATIENT
  Age: 92 Year
  Sex: Male
  Weight: 70.8 kg

DRUGS (1)
  1. MOXIFLOXACIN [Suspect]
     Route: 042
     Dates: start: 20130227, end: 20130228

REACTIONS (1)
  - Electrocardiogram QT prolonged [None]
